FAERS Safety Report 7099364-2 (Version None)
Quarter: 2010Q4

REPORT INFORMATION
  Report Type: 
  Country: None (occurrence: None)
  Receive Date: 20101105
  Receipt Date: 20101026
  Transmission Date: 20110411
  Serious: Yes (Hospitalization)
  Sender: FDA-Public Use
  Company Number: 021048

PATIENT
  Age: 27 Year
  Sex: Female

DRUGS (23)
  1. KEPPRA [Suspect]
     Dosage: (2500MG), (3000MG), (1000MG)
     Dates: start: 20090701, end: 20091207
  2. KEPPRA [Suspect]
     Dosage: (2500MG), (3000MG), (1000MG)
     Dates: start: 20091208, end: 20091213
  3. KEPPRA [Suspect]
     Dosage: (2500MG), (3000MG), (1000MG)
     Dates: start: 20091215, end: 20091215
  4. KEPPRA [Suspect]
     Dosage: (2500MG), (3000MG), (1000MG)
     Dates: start: 20091216
  5. RISPERDAL CONSTA [Suspect]
     Dosage: (50MG), (100MG)
     Dates: start: 20090701, end: 20091217
  6. RISPERDAL CONSTA [Suspect]
     Dosage: (50MG), (100MG)
     Dates: start: 20091223
  7. HALDOL [Suspect]
     Dosage: (5MG), (10MG), (7.5MG)
     Dates: start: 20091203, end: 20091203
  8. HALDOL [Suspect]
     Dosage: (5MG), (10MG), (7.5MG)
     Dates: start: 20091204, end: 20091209
  9. HALDOL [Suspect]
     Dosage: (5MG), (10MG), (7.5MG)
     Dates: start: 20091210, end: 20091210
  10. HALDOL [Suspect]
     Dosage: (5MG), (10MG), (7.5MG)
     Dates: start: 20091211, end: 20091213
  11. SEROQUEL XR [Suspect]
     Dosage: (600MG), (300MG), (700MG)
     Dates: start: 20091203, end: 20091213
  12. SEROQUEL XR [Suspect]
     Dosage: (600MG), (300MG), (700MG)
     Dates: start: 20091215, end: 20091215
  13. SEROQUEL XR [Suspect]
     Dosage: (600MG), (300MG), (700MG)
     Dates: start: 20091216, end: 20091220
  14. RISPERDAL [Suspect]
     Dosage: (4MG), (6MG), (3MG)
     Dates: start: 20091203, end: 20091213
  15. RISPERDAL [Suspect]
     Dosage: (4MG), (6MG), (3MG)
     Dates: start: 20091215, end: 20091221
  16. RISPERDAL [Suspect]
     Dosage: (4MG), (6MG), (3MG)
     Dates: start: 20091222, end: 20100103
  17. SEROQUEL [Concomitant]
  18. CLONAZEPAM [Concomitant]
  19. AKINETON /00079501/ [Concomitant]
  20. PANTOLOC /01263202/ [Concomitant]
  21. DEPAKENE [Concomitant]
  22. THYREX [Concomitant]
  23. DOMINAL /00018902/ [Concomitant]

REACTIONS (2)
  - CONDITION AGGRAVATED [None]
  - RESTLESSNESS [None]
